FAERS Safety Report 19347357 (Version 1)
Quarter: 2021Q2

REPORT INFORMATION
  Report Type: Spontaneous
  Country: US (occurrence: US)
  Receive Date: 20210531
  Receipt Date: 20210531
  Transmission Date: 20210717
  Serious: Yes (Death, Other)
  Sender: FDA-Public Use
  Company Number: US-PURDUE-USA-2020-0158103

PATIENT
  Age: 36 Year
  Sex: Male

DRUGS (2)
  1. PHENTANYL [Suspect]
     Active Substance: FENTANYL
     Indication: PRODUCT USED FOR UNKNOWN INDICATION
     Dosage: UNK
     Route: 065
  2. OXYCONTIN [Suspect]
     Active Substance: OXYCODONE HYDROCHLORIDE
     Indication: INFECTION
     Dosage: UNK
     Route: 048
     Dates: start: 201210, end: 201905

REACTIONS (3)
  - Overdose [Fatal]
  - Drug dependence [Fatal]
  - Drug abuse [Unknown]

NARRATIVE: CASE EVENT DATE: 201905
